FAERS Safety Report 16845863 (Version 1)
Quarter: 2019Q3

REPORT INFORMATION
  Report Type: Spontaneous
  Country: US (occurrence: US)
  Receive Date: 20190924
  Receipt Date: 20190924
  Transmission Date: 20191005
  Serious: No
  Sender: FDA-Public Use
  Company Number: US-CATALYST PHARMACEUTICALS, INC-2019CAT00242

PATIENT
  Sex: Male
  Weight: 113.38 kg

DRUGS (5)
  1. SYNTHROID [Concomitant]
     Active Substance: LEVOTHYROXINE SODIUM
     Dosage: 300 ?G, 1X/DAY
  2. FIRDAPSE [Suspect]
     Active Substance: AMIFAMPRIDINE
     Indication: MYASTHENIC SYNDROME
     Dosage: 20 MG, 3X/DAY
     Route: 048
     Dates: start: 201902, end: 2019
  3. FIRDAPSE [Suspect]
     Active Substance: AMIFAMPRIDINE
     Dosage: 20 MG, 3X/DAY
     Route: 048
     Dates: start: 2019
  4. UNSPECIFIED HIGH BLOOD PRESSURE MEDICATIONS [Concomitant]
     Active Substance: UNSPECIFIED INGREDIENT
  5. FIRDAPSE [Suspect]
     Active Substance: AMIFAMPRIDINE
     Dosage: EXTRA TABLET, AS NEEDED
     Dates: start: 2019

REACTIONS (8)
  - Fatigue [Not Recovered/Not Resolved]
  - Product dose omission [Recovered/Resolved]
  - Gait disturbance [Not Recovered/Not Resolved]
  - Headache [Not Recovered/Not Resolved]
  - Paraesthesia oral [Not Recovered/Not Resolved]
  - Muscular weakness [Not Recovered/Not Resolved]
  - Therapeutic product effect incomplete [Not Recovered/Not Resolved]
  - Product substitution issue [Not Recovered/Not Resolved]

NARRATIVE: CASE EVENT DATE: 2019
